FAERS Safety Report 7745572-4 (Version None)
Quarter: 2011Q3

REPORT INFORMATION
  Report Type: 
  Country: None (occurrence: None)
  Receive Date: 20110913
  Receipt Date: 20110830
  Transmission Date: 20111222
  Serious: Yes (Hospitalization, Other)
  Sender: FDA-Public Use
  Company Number: US-ELI_LILLY_AND_COMPANY-US201106002123

PATIENT
  Sex: Female

DRUGS (12)
  1. CENTRUM SILVER [Concomitant]
     Dosage: UNK, QD
  2. CALCIUM CARBONATE [Concomitant]
     Dosage: 1000 MG, QD
  3. AZILECT [Concomitant]
     Dosage: 1 MG, QD
  4. FORTEO [Suspect]
     Dosage: 20 UG, QD
     Route: 065
  5. TYLENOL W/ CODEINE [Concomitant]
  6. SINEMET [Concomitant]
     Dosage: UNK, EVERY 6 HRS
  7. COMTAN [Concomitant]
     Dosage: 200 MG, TID
  8. VITAMIN D [Concomitant]
  9. FORTEO [Suspect]
     Indication: OSTEOPOROSIS
     Dosage: 20 UG, QD
     Route: 065
     Dates: start: 20110509
  10. FORTEO [Suspect]
     Dosage: 20 UG, QD
     Route: 065
  11. SOMA [Concomitant]
     Dosage: UNK, BID
  12. MIRAPEX [Concomitant]
     Dosage: 1.5 MG, EVERY 6 HRS

REACTIONS (6)
  - INJECTION SITE EXTRAVASATION [None]
  - PAIN IN EXTREMITY [None]
  - VITAMIN D INCREASED [None]
  - INJECTION SITE HAEMATOMA [None]
  - SURGERY [None]
  - ASTHENIA [None]
